FAERS Safety Report 5721597-5 (Version None)
Quarter: 2008Q2

REPORT INFORMATION
  Report Type: 
  Country: None (occurrence: None)
  Receive Date: 20080428
  Receipt Date: 20080428
  Transmission Date: 20081010
  Serious: Yes (Other)
  Sender: FDA-Public Use
  Company Number: None

PATIENT
  Age: 55 Year
  Sex: Female
  Weight: 74.8435 kg

DRUGS (10)
  1. RISPERDAL CONSTA [Suspect]
     Indication: BIPOLAR DISORDER
     Dosage: 25MG Q 2 WEEKS IM
     Route: 030
     Dates: start: 20070220, end: 20080426
  2. RISPERDAL CONSTA [Suspect]
     Indication: TREATMENT NONCOMPLIANCE
     Dosage: 25MG Q 2 WEEKS IM
     Route: 030
     Dates: start: 20070220, end: 20080426
  3. MIACALCIN [Concomitant]
  4. FOSAMAX [Concomitant]
  5. LEVOTHYROXINE SODIUM [Concomitant]
  6. BACLOFEN [Concomitant]
  7. BETASERON [Concomitant]
  8. LITHIUM CARBONATE [Concomitant]
  9. GABAPENTIN [Concomitant]
  10. DITROPAN [Concomitant]

REACTIONS (2)
  - FALL [None]
  - MYOCLONUS [None]
